FAERS Safety Report 23276030 (Version 1)
Quarter: 2023Q4

REPORT INFORMATION
  Report Type: Spontaneous
  Country: US (occurrence: US)
  Receive Date: 20231208
  Receipt Date: 20231208
  Transmission Date: 20240110
  Serious: Yes (Other)
  Sender: FDA-Public Use
  Company Number: US-BRISTOL-MYERS SQUIBB COMPANY-2023-177899

PATIENT
  Age: 81 Year
  Sex: Male
  Weight: 141.52 kg

DRUGS (1)
  1. ONUREG [Suspect]
     Active Substance: AZACITIDINE
     Indication: Acute myeloid leukaemia (in remission)
     Dosage: DAILY
     Route: 048

REACTIONS (1)
  - Acute myeloid leukaemia recurrent [Unknown]
